FAERS Safety Report 17220006 (Version 1)
Quarter: 2019Q4

REPORT INFORMATION
  Report Type: Spontaneous
  Country: US (occurrence: US)
  Receive Date: 20191231
  Receipt Date: 20191231
  Transmission Date: 20200122
  Serious: No
  Sender: FDA-Public Use
  Company Number: US-SA-2019SA359888

PATIENT
  Sex: Female

DRUGS (1)
  1. PRALUENT [Suspect]
     Active Substance: ALIROCUMAB
     Indication: MYASTHENIA GRAVIS
     Dosage: 75 MG, QOW
     Route: 058
     Dates: start: 20180424

REACTIONS (3)
  - Product use in unapproved indication [Unknown]
  - Fall [Unknown]
  - Limb injury [Unknown]
